FAERS Safety Report 7334883-2 (Version None)
Quarter: 2011Q1

REPORT INFORMATION
  Report Type: 
  Country: None (occurrence: None)
  Receive Date: 20110307
  Receipt Date: 20110224
  Transmission Date: 20110831
  Serious: Yes (Other)
  Sender: FDA-Public Use
  Company Number: MX-JNJFOC-20110200925

PATIENT
  Age: 17 Year
  Sex: Female
  Weight: 56 kg

DRUGS (4)
  1. DIPHENHYDRAMINE [Concomitant]
     Indication: PREMEDICATION
     Route: 042
  2. INFLIXIMAB, RECOMBINANT [Suspect]
     Dosage: RECEIVED A TOTAL OF 5 DOSES
     Route: 042
  3. INFLIXIMAB, RECOMBINANT [Suspect]
     Indication: COLITIS ULCERATIVE
     Dosage: 2 INITIAL DOSES
     Route: 042
  4. INFLIXIMAB, RECOMBINANT [Suspect]
     Route: 042

REACTIONS (10)
  - DYSPNOEA [None]
  - RASH GENERALISED [None]
  - VOMITING [None]
  - ERYTHEMA [None]
  - FEELING HOT [None]
  - ALOPECIA [None]
  - CYANOSIS [None]
  - BRADYCARDIA [None]
  - INFUSION RELATED REACTION [None]
  - CONDITION AGGRAVATED [None]
